FAERS Safety Report 4358471-5 (Version None)
Quarter: 2004Q2

REPORT INFORMATION
  Report Type: 
  Country: None (occurrence: None)
  Receive Date: 20040514
  Receipt Date: 20031107
  Transmission Date: 20050107
  Serious: Yes (Death)
  Sender: FDA-Public Use
  Company Number: PHHO2003GB14249

PATIENT
  Age: 80 Year
  Sex: Male

DRUGS (2)
  1. CARBAMAZEPINE VS VALPROATE VS NEW DRUGS [Suspect]
     Indication: EPILEPSY
     Dates: start: 20010227, end: 20010525
  2. LAMOTRIGINE [Concomitant]
     Indication: EPILEPSY
     Dosage: 100MG/D
     Dates: start: 20010525, end: 20010701

REACTIONS (6)
  - CARDIAC FAILURE CONGESTIVE [None]
  - CONCOMITANT DISEASE PROGRESSION [None]
  - MALIGNANT NEOPLASM PROGRESSION [None]
  - MYOCARDIAL ISCHAEMIA [None]
  - PROSTATE CANCER [None]
  - RENAL FAILURE [None]
